FAERS Safety Report 5215811-2 (Version None)
Quarter: 2007Q1

REPORT INFORMATION
  Report Type: 
  Country: None (occurrence: None)
  Receive Date: 20070123
  Receipt Date: 20070112
  Transmission Date: 20070707
  Serious: Yes (Hospitalization)
  Sender: FDA-Public Use
  Company Number: US-JNJFOC-20070103303

PATIENT
  Sex: Female

DRUGS (5)
  1. DURAGESIC-100 [Suspect]
     Indication: PAIN
     Route: 062
  2. PREMPRO [Concomitant]
     Indication: HORMONE REPLACEMENT THERAPY
     Route: 065
  3. PRILOSEC [Concomitant]
     Indication: GASTROOESOPHAGEAL REFLUX DISEASE
     Route: 065
  4. DILAUDID [Concomitant]
     Indication: PAIN
     Route: 065
  5. VITAMINS [Concomitant]
     Indication: NUTRITIONAL SUPPORT
     Route: 065

REACTIONS (2)
  - ABDOMINAL HERNIA [None]
  - WOUND INFECTION [None]
